FAERS Safety Report 17279403 (Version 1)
Quarter: 2020Q1

REPORT INFORMATION
  Report Type: Spontaneous
  Country: AT (occurrence: AT)
  Receive Date: 20200116
  Receipt Date: 20200116
  Transmission Date: 20200409
  Serious: Yes (Other)
  Sender: FDA-Public Use
  Company Number: AT-GILEAD-2020-0446675

PATIENT
  Age: 74 Year
  Sex: Male

DRUGS (1)
  1. ATRIPLA [Suspect]
     Active Substance: EFAVIRENZ\EMTRICITABINE\TENOFOVIR DISOPROXIL FUMARATE
     Indication: HIV INFECTION
     Dosage: UNK
     Route: 065
     Dates: start: 200904, end: 201805

REACTIONS (6)
  - Hypertension [Unknown]
  - Femoral neck fracture [Unknown]
  - Deafness bilateral [Unknown]
  - Disease risk factor [Unknown]
  - Vestibular neuronitis [Unknown]
  - Waist circumference increased [Unknown]

NARRATIVE: CASE EVENT DATE: 20100303
